FAERS Safety Report 4711391-6 (Version None)
Quarter: 2005Q3

REPORT INFORMATION
  Report Type: 
  Country: None (occurrence: None)
  Receive Date: 20050708
  Receipt Date: 20050627
  Transmission Date: 20060218
  Serious: Yes (Other)
  Sender: FDA-Public Use
  Company Number: 2005088967

PATIENT
  Age: 80 Year
  Sex: Female
  Weight: 62.5964 kg

DRUGS (4)
  1. CELEBREX [Suspect]
     Indication: OSTEOARTHRITIS
     Dosage: 200 MG (200 MG, 1 IN 1 D), ORAL
     Route: 048
     Dates: start: 20040101
  2. TOPROL (METOPROLOL) [Concomitant]
  3. SYNTHROID [Concomitant]
  4. ACTONEL [Concomitant]

REACTIONS (4)
  - ARTHRALGIA [None]
  - ARTHRITIS [None]
  - INADEQUATE ANALGESIA [None]
  - POST PROCEDURAL COMPLICATION [None]
